FAERS Safety Report 12409321 (Version 1)
Quarter: 2016Q2

REPORT INFORMATION
  Report Type: Spontaneous
  Country: US (occurrence: US)
  Receive Date: 20160526
  Receipt Date: 20160526
  Transmission Date: 20160815
  Serious: Yes (Other)
  Sender: FDA-Public Use
  Company Number: US-PURDUE-USA-2016-0131134

PATIENT
  Sex: Female

DRUGS (1)
  1. BUTRANS [Suspect]
     Active Substance: BUPRENORPHINE
     Indication: ANALGESIC THERAPY
     Dosage: 7.5 MCG/HR, WEEKLY
     Route: 062
     Dates: start: 201510

REACTIONS (14)
  - Nightmare [Unknown]
  - Disorientation [Unknown]
  - Confusional state [Unknown]
  - Paranoia [Unknown]
  - Nausea [Unknown]
  - Flushing [Unknown]
  - Headache [Unknown]
  - Arrhythmia [Unknown]
  - Wrong technique in product usage process [Unknown]
  - Pruritus [Unknown]
  - Drug hypersensitivity [Unknown]
  - Dizziness [Unknown]
  - Rash [Unknown]
  - Insomnia [Unknown]
